FAERS Safety Report 9281401 (Version 1)
Quarter: 2013Q2

REPORT INFORMATION
  Report Type: Spontaneous
  Country: DE (occurrence: DE)
  Receive Date: 20130509
  Receipt Date: 20130509
  Transmission Date: 20140414
  Serious: Yes (Disabling, Other)
  Sender: FDA-Public Use
  Company Number: DE-BAXTER-2013BAX016815

PATIENT
  Age: 31 Year
  Sex: Female

DRUGS (3)
  1. GLUCOSE 10 BAXTER [Suspect]
     Indication: NAUSEA
     Route: 042
  2. GLUCOSE 10 BAXTER [Suspect]
     Indication: VOMITING
  3. GLUCOSE 10 BAXTER [Suspect]
     Indication: ABDOMINAL PAIN

REACTIONS (5)
  - Hyponatraemia [Recovered/Resolved]
  - Grand mal convulsion [Recovered/Resolved]
  - Brain oedema [Recovered/Resolved]
  - Hyponatraemic encephalopathy [Recovered/Resolved]
  - Physical disability [Recovered/Resolved with Sequelae]
